FAERS Safety Report 7101414-1 (Version None)
Quarter: 2010Q4

REPORT INFORMATION
  Report Type: 
  Country: None (occurrence: None)
  Receive Date: 20101115
  Receipt Date: 20101108
  Transmission Date: 20110411
  Serious: No
  Sender: FDA-Public Use
  Company Number: US-PFIZER INC-2010143660

PATIENT
  Sex: Male
  Weight: 109 kg

DRUGS (6)
  1. LYRICA [Suspect]
     Indication: BURNING FEET SYNDROME
     Dosage: 75 MG, 2X/DAY
     Route: 048
     Dates: start: 20100101, end: 20101107
  2. PLAVIX [Suspect]
     Indication: CARDIOVASCULAR DISORDER
     Dosage: 75 MG, 1X/DAY
     Route: 048
  3. ACETAMINOPHEN [Suspect]
     Indication: HEADACHE
     Dosage: 500 MG, UNK
  4. DARVOCET [Suspect]
     Indication: PROSTATIC DISORDER
     Dosage: (DEXTROPROPOXYPHENE NAPSILATE, 100 MG)(PARACETAMOL, 650 MG)
     Route: 048
  5. DARVOCET [Suspect]
     Indication: PAIN
  6. CEFPIROME [Suspect]
     Indication: PROSTATIC DISORDER
     Dosage: 500 MG, 2X/DAY

REACTIONS (2)
  - ABDOMINAL DISCOMFORT [None]
  - DRUG INEFFECTIVE [None]
